FAERS Safety Report 8454748-2 (Version None)
Quarter: 2012Q2

REPORT INFORMATION
  Report Type: 
  Country: None (occurrence: None)
  Receive Date: 20120621
  Receipt Date: 20120611
  Transmission Date: 20120825
  Serious: Yes (Other)
  Sender: FDA-Public Use
  Company Number: CA-JNJFOC-20120605454

PATIENT
  Sex: Female
  Weight: 72.4 kg

DRUGS (6)
  1. IMURAN [Concomitant]
     Route: 065
  2. ZOLOFT [Concomitant]
     Route: 065
  3. LYRICA [Concomitant]
     Route: 065
  4. REMICADE [Suspect]
     Indication: RHEUMATOID ARTHRITIS
     Route: 042
     Dates: start: 20050601
  5. HYDROCHLOROTHIAZIDE [Concomitant]
     Route: 065
  6. SYNTHROID [Concomitant]
     Route: 065

REACTIONS (4)
  - PAIN [None]
  - PNEUMOTHORAX [None]
  - DYSPNOEA [None]
  - MIDDLE INSOMNIA [None]
